FAERS Safety Report 7027883-3 (Version None)
Quarter: 2010Q4

REPORT INFORMATION
  Report Type: 
  Country: None (occurrence: None)
  Receive Date: 20101005
  Receipt Date: 20100924
  Transmission Date: 20110411
  Serious: No
  Sender: FDA-Public Use
  Company Number: US-BIOGENIDEC-2010BI033580

PATIENT
  Sex: Female

DRUGS (2)
  1. TYSABRI [Suspect]
     Indication: MULTIPLE SCLEROSIS
     Route: 042
     Dates: start: 20090122
  2. AMPYRA [Concomitant]
     Indication: DYSSTASIA

REACTIONS (3)
  - DYSSTASIA [None]
  - EYE DISORDER [None]
  - MEMORY IMPAIRMENT [None]
